FAERS Safety Report 8330226 (Version 9)
Quarter: 2015Q4

REPORT INFORMATION
  Report Type: Spontaneous
  Country: JP (occurrence: JP)
  Receive Date: 20120111
  Receipt Date: 20151202
  Transmission Date: 20160305
  Serious: Yes (Life-Threatening, Hospitalization)
  Sender: FDA-Public Use
  Company Number: JP-SANOFI-AVENTIS-2012SA001486

PATIENT
  Age: 40 Year
  Sex: Male
  Weight: 66.4 kg

DRUGS (17)
  1. AMARYL [Suspect]
     Active Substance: GLIMEPIRIDE
     Indication: DIABETES MELLITUS
     Route: 048
  2. ROSUVASTATIN [Concomitant]
     Active Substance: ROSUVASTATIN
  3. QUAZEPAM. [Concomitant]
     Active Substance: QUAZEPAM
  4. MYSLEE [Suspect]
     Active Substance: ZOLPIDEM TARTRATE
     Indication: SUICIDE ATTEMPT
     Dosage: DOSE- 5MGX 2 TIMES= 10 TABLETS
     Route: 048
  5. INSULIN [Concomitant]
     Active Substance: INSULIN NOS
     Indication: DIABETES MELLITUS
     Dosage: 30-50 UNITS DAILY
  6. AMARYL [Suspect]
     Active Substance: GLIMEPIRIDE
     Indication: SUICIDE ATTEMPT
     Dosage: DOSE: OVERDOSE?DOSE- 14 TABLETS OF 3 MG EACH
     Route: 048
     Dates: start: 20120101, end: 20120101
  7. AMARYL [Suspect]
     Active Substance: GLIMEPIRIDE
     Indication: DIABETES MELLITUS
     Dosage: DOSE: OVERDOSE?DOSE- 14 TABLETS OF 3 MG EACH
     Route: 048
     Dates: start: 20120101, end: 20120101
  8. METHYLPREDNISOLONE. [Suspect]
     Active Substance: METHYLPREDNISOLONE
     Indication: PROPHYLAXIS
     Route: 065
  9. METFORMIN [Concomitant]
     Active Substance: METFORMIN HYDROCHLORIDE
  10. AMARYL [Suspect]
     Active Substance: GLIMEPIRIDE
     Indication: SUICIDE ATTEMPT
     Route: 048
  11. MIGLITOL. [Concomitant]
     Active Substance: MIGLITOL
     Route: 048
  12. BROTIZOLAM [Concomitant]
     Active Substance: BROTIZOLAM
  13. MYSLEE [Suspect]
     Active Substance: ZOLPIDEM TARTRATE
     Indication: SUICIDE ATTEMPT
     Dosage: 1 TABLETS OF 5MG (CONSUMED 10 TABLETS)
     Route: 048
     Dates: start: 20120101, end: 20120101
  14. JANUVIA [Concomitant]
     Active Substance: SITAGLIPTIN PHOSPHATE
     Route: 048
  15. INSULIN [Concomitant]
     Active Substance: INSULIN NOS
     Indication: DIABETES MELLITUS
     Dates: start: 200412
  16. VILDAGLIPTIN [Concomitant]
     Active Substance: VILDAGLIPTIN
  17. MITIGLINIDE [Concomitant]
     Active Substance: MITIGLINIDE
     Route: 048

REACTIONS (16)
  - Suicide attempt [Recovered/Resolved]
  - Altered state of consciousness [Recovered/Resolved]
  - Blood lactate dehydrogenase increased [Recovered/Resolved]
  - Blood pressure decreased [Recovered/Resolved]
  - C-reactive protein increased [Recovered/Resolved]
  - Hypoglycaemia [Recovered/Resolved]
  - Tachycardia [Recovered/Resolved]
  - Heart injury [Recovered/Resolved]
  - Blood creatine phosphokinase increased [Recovered/Resolved]
  - Blood creatine phosphokinase MB increased [Recovered/Resolved]
  - Troponin I increased [Recovered/Resolved]
  - Hyperglycaemia [Recovered/Resolved]
  - Aspartate aminotransferase increased [Recovered/Resolved]
  - Intentional overdose [Unknown]
  - White blood cell count increased [Recovered/Resolved]
  - Blood creatinine increased [Recovered/Resolved]

NARRATIVE: CASE EVENT DATE: 2012
